FAERS Safety Report 8954399 (Version 1)
Quarter: 2012Q4

REPORT INFORMATION
  Report Type: Spontaneous
  Country: GB (occurrence: None)
  Receive Date: 20121130
  Receipt Date: 20121130
  Transmission Date: 20130627
  Serious: Yes (Hospitalization, Other)
  Sender: FDA-Public Use
  Company Number: GER/UKI/12/0026838

PATIENT
  Age: 37 Year
  Sex: Male

DRUGS (3)
  1. LAMOTRIGINE (LAMOTRIGINE) [Suspect]
     Indication: DRUG USE FOR UNKNOWN INDICATION
     Route: 048
     Dates: start: 20101001, end: 20111014
  2. CANDESARTAN [Concomitant]
  3. METFORMIN (METFORMIN) [Concomitant]

REACTIONS (3)
  - Renal failure acute [None]
  - Drug reaction with eosinophilia and systemic symptoms [None]
  - Tubulointerstitial nephritis [None]
